FAERS Safety Report 11855339 (Version 2)
Quarter: 2016Q4

REPORT INFORMATION
  Report Type: Report from Study
  Country: DE (occurrence: DE)
  Receive Date: 20151221
  Receipt Date: 20161219
  Transmission Date: 20170206
  Serious: Yes (Hospitalization)
  Sender: FDA-Public Use
  Company Number: PHHY2015DE097645

PATIENT
  Sex: Male

DRUGS (5)
  1. TILIDINE [Concomitant]
     Active Substance: TILIDINE
     Indication: BACK PAIN
     Dosage: 50 MG, PRN (AS NEEDED)
     Route: 048
     Dates: start: 20131219
  2. PANTOPRAZOLE [Concomitant]
     Active Substance: PANTOPRAZOLE SODIUM
     Indication: DYSPEPSIA
     Route: 048
     Dates: start: 20141001, end: 20150107
  3. SIMVASTATIN. [Concomitant]
     Active Substance: SIMVASTATIN
     Indication: HYPERTENSION
     Route: 065
     Dates: start: 20150726, end: 20151008
  4. TASIGNA [Suspect]
     Active Substance: NILOTINIB
     Indication: CHRONIC MYELOID LEUKAEMIA
     Dosage: 600 MG, QD
     Route: 065
     Dates: start: 20131206
  5. CORTISONE [Concomitant]
     Active Substance: CORTISONE\HYDROCORTISONE
     Indication: ECZEMA
     Route: 065
     Dates: start: 20140630

REACTIONS (4)
  - Memory impairment [Unknown]
  - Speech disorder [Unknown]
  - Transient ischaemic attack [Recovered/Resolved]
  - Aphasia [Unknown]

NARRATIVE: CASE EVENT DATE: 20150726
